FAERS Safety Report 8814229 (Version 2)
Quarter: 2013Q1

REPORT INFORMATION
  Report Type: Spontaneous
  Country: US (occurrence: US)
  Receive Date: 20120928
  Receipt Date: 20130110
  Transmission Date: 20140127
  Serious: Yes (Other)
  Sender: FDA-Public Use
  Company Number: US-BAYER-2012-099014

PATIENT
  Age: 30 Year
  Sex: Female

DRUGS (3)
  1. OCELLA [Suspect]
  2. YASMIN [Suspect]
  3. MACROBID [Concomitant]
     Indication: URINARY TRACT INFECTION
     Dosage: 100 MG, UNK

REACTIONS (1)
  - Deep vein thrombosis [None]
